FAERS Safety Report 7568118-2 (Version None)
Quarter: 2011Q2

REPORT INFORMATION
  Report Type: 
  Country: None (occurrence: None)
  Receive Date: 20110616
  Receipt Date: 20110607
  Transmission Date: 20111010
  Serious: Yes (Other)
  Sender: FDA-Public Use
  Company Number: DSA_46824_2011

PATIENT
  Sex: Male

DRUGS (4)
  1. PRAZEPAM [Concomitant]
  2. WELLBUTRIN [Suspect]
     Indication: PRODUCT USED FOR UNKNOWN INDICATION
     Dosage: (150 MG QD), (300 MG QD), (150 MG QD)
     Dates: start: 20110523
  3. WELLBUTRIN [Suspect]
     Indication: PRODUCT USED FOR UNKNOWN INDICATION
     Dosage: (150 MG QD), (300 MG QD), (150 MG QD)
     Dates: start: 20110510, end: 20110522
  4. WELLBUTRIN [Suspect]
     Indication: PRODUCT USED FOR UNKNOWN INDICATION
     Dosage: (150 MG QD), (300 MG QD), (150 MG QD)
     Dates: start: 20110415, end: 20110509

REACTIONS (2)
  - DEREALISATION [None]
  - DISTURBANCE IN ATTENTION [None]
